FAERS Safety Report 9825605 (Version 1)
Quarter: 2013Q4

REPORT INFORMATION
  Report Type: Spontaneous
  Country: US (occurrence: None)
  Receive Date: 20131028
  Receipt Date: 20131028
  Transmission Date: 20140711
  Serious: Yes (Other)
  Sender: FDA-Public Use
  Company Number: 2013US002350

PATIENT
  Age: 37 Year
  Sex: Male
  Weight: 103 kg

DRUGS (5)
  1. ICLUSIG [Suspect]
     Route: 048
     Dates: start: 20130221
  2. ASPIRIN (ASPIRIN) [Concomitant]
  3. IRON (IRON) [Concomitant]
  4. MAGNESIUM (MAGNESIUM) [Concomitant]
  5. POTASSIUM (POTASSIUM) [Concomitant]

REACTIONS (1)
  - Skin hypopigmentation [None]
